FAERS Safety Report 25555252 (Version 1)
Quarter: 2025Q3

REPORT INFORMATION
  Report Type: Spontaneous
  Country: JP (occurrence: JP)
  Receive Date: 20250715
  Receipt Date: 20250715
  Transmission Date: 20251021
  Serious: Yes (Hospitalization)
  Sender: LABORATOIRES SERB
  Company Number: JP-SERB S.A.S.-2180550

PATIENT

DRUGS (3)
  1. VORAXAZE [Suspect]
     Active Substance: GLUCARPIDASE
     Indication: Toxicity to various agents
     Dates: start: 20250624, end: 20250626
  2. METHOTREXATE [Concomitant]
     Active Substance: METHOTREXATE
  3. LEUCOVORIN [Concomitant]
     Active Substance: LEUCOVORIN\LEUCOVORIN CALCIUM

REACTIONS (1)
  - Blood creatinine increased [Recovering/Resolving]

NARRATIVE: CASE EVENT DATE: 20250601
